FAERS Safety Report 6879629-7 (Version None)
Quarter: 2010Q3

REPORT INFORMATION
  Report Type: 
  Country: None (occurrence: None)
  Receive Date: 20100727
  Receipt Date: 20091005
  Transmission Date: 20110219
  Serious: No
  Sender: FDA-Public Use
  Company Number: US-ABBOTT-09P-163-0601753-00

PATIENT
  Sex: Female
  Weight: 64.014 kg

DRUGS (9)
  1. SYNTHROID [Suspect]
     Indication: AUTOIMMUNE THYROIDITIS
     Dates: start: 19910101
  2. LIPITOR [Concomitant]
     Indication: HYPERCHOLESTEROLAEMIA
  3. PROPRANOLOL [Concomitant]
     Indication: ATRIAL FIBRILLATION
  4. HYOMAX [Concomitant]
     Indication: IRRITABLE BOWEL SYNDROME
  5. PREMARIN [Concomitant]
     Indication: HORMONE REPLACEMENT THERAPY
  6. VAGIFEM [Concomitant]
     Indication: INADEQUATE LUBRICATION
  7. ASPIRIN [Concomitant]
     Indication: ATRIAL FIBRILLATION
  8. CALCIUM [Concomitant]
     Indication: MINERAL SUPPLEMENTATION
  9. DULCOLAX [Concomitant]
     Indication: IRRITABLE BOWEL SYNDROME

REACTIONS (7)
  - BLOOD THYROID STIMULATING HORMONE ABNORMAL [None]
  - BRONCHITIS [None]
  - COUGH [None]
  - FEELING JITTERY [None]
  - NASOPHARYNGITIS [None]
  - SLEEP DISORDER [None]
  - WHEEZING [None]
